FAERS Safety Report 7183167-4 (Version None)
Quarter: 2010Q4

REPORT INFORMATION
  Report Type: 
  Country: None (occurrence: None)
  Receive Date: 20101222
  Receipt Date: 20101210
  Transmission Date: 20110411
  Serious: Yes (Hospitalization)
  Sender: FDA-Public Use
  Company Number: IN-RANBAXY-2010RR-40309

PATIENT
  Age: 62 Year
  Sex: Male

DRUGS (5)
  1. ZOLPIDEM TARTRATE [Suspect]
     Indication: INSOMNIA
     Dosage: 10 MG, UNK
  2. ZOLPIDEM TARTRATE [Suspect]
     Dosage: 60 MG, UNK
  3. ZOLPIDEM TARTRATE [Suspect]
     Dosage: 160-180 MG/DAY
  4. ESCITALOPRAM [Concomitant]
  5. DOMPERIDONE/ PARACETAMOL [Concomitant]

REACTIONS (3)
  - DELIRIUM [None]
  - DRUG DEPENDENCE [None]
  - DRUG WITHDRAWAL SYNDROME [None]
